FAERS Safety Report 4331835-1 (Version None)
Quarter: 2004Q2

REPORT INFORMATION
  Report Type: 
  Country: None (occurrence: None)
  Receive Date: 20040405
  Receipt Date: 20031107
  Transmission Date: 20050107
  Serious: Yes (Other)
  Sender: FDA-Public Use
  Company Number: US-GLAXOSMITHKLINE-A0438821A

PATIENT
  Age: 10 Year
  Sex: Female

DRUGS (17)
  1. FLOVENT [Suspect]
     Indication: ASTHMA
     Dosage: 220MCG TWICE PER DAY
     Route: 055
     Dates: start: 20000101, end: 20030901
  2. SINGULAIR [Concomitant]
  3. FORADIL [Concomitant]
  4. NASACORT AQ [Concomitant]
  5. NEURONTIN [Concomitant]
  6. FIBERCON [Concomitant]
  7. SENNA [Concomitant]
  8. CITRACAL [Concomitant]
  9. VITAMIN E [Concomitant]
  10. MULTI VITAMINS WITH IRON [Concomitant]
  11. DICYCLOMINE [Concomitant]
  12. ZANTAC [Concomitant]
     Route: 048
  13. DALLERGY [Concomitant]
  14. XOPENEX [Concomitant]
  15. ATROVENT [Concomitant]
  16. PHENERGAN [Concomitant]
  17. AMICAR [Concomitant]

REACTIONS (2)
  - ADRENAL SUPPRESSION [None]
  - FATIGUE [None]
